FAERS Safety Report 17308820 (Version 1)
Quarter: 2020Q1

REPORT INFORMATION
  Report Type: Spontaneous
  Country: JP (occurrence: JP)
  Receive Date: 20200123
  Receipt Date: 20200123
  Transmission Date: 20200409
  Serious: Yes (Hospitalization)
  Sender: FDA-Public Use
  Company Number: US-SLATE RUN PHARMACEUTICALS-SLTR-AE-20-6

PATIENT
  Age: 54 Year
  Sex: Female

DRUGS (7)
  1. POLYMYXIN B. [Concomitant]
     Active Substance: POLYMYXIN B
     Indication: ANTIBIOTIC PROPHYLAXIS
  2. SULFAMETHOXAZOLE/TRIMETHOPRIM [Concomitant]
     Active Substance: SULFAMETHOXAZOLE\TRIMETHOPRIM
     Indication: ANTIBIOTIC PROPHYLAXIS
  3. LINEZOLID. [Concomitant]
     Active Substance: LINEZOLID
  4. ACYCLOVIR. [Concomitant]
     Active Substance: ACYCLOVIR
  5. VANCOMYCIN [Concomitant]
     Active Substance: VANCOMYCIN
  6. VORICONAZOLE. [Suspect]
     Active Substance: VORICONAZOLE
     Indication: STAPHYLOCOCCAL INFECTION
  7. MEROPENEM. [Concomitant]
     Active Substance: MEROPENEM

REACTIONS (13)
  - Leukopenia [Unknown]
  - C-reactive protein increased [Unknown]
  - Bacillus infection [Recovered/Resolved]
  - Pyrexia [Unknown]
  - Chills [Unknown]
  - Nuchal rigidity [Unknown]
  - Immune reconstitution inflammatory syndrome [Recovered/Resolved]
  - Shock [Recovered/Resolved]
  - Altered state of consciousness [Recovered/Resolved]
  - Thrombocytopenia [Unknown]
  - Nausea [Unknown]
  - Meningitis bacterial [Recovered/Resolved]
  - Headache [Unknown]
